FAERS Safety Report 24432829 (Version 3)
Quarter: 2024Q4

REPORT INFORMATION
  Report Type: Report from Study
  Country: US (occurrence: US)
  Receive Date: 20241014
  Receipt Date: 20241031
  Transmission Date: 20250115
  Serious: Yes (Life-Threatening, Other)
  Sender: EXELIXIS
  Company Number: US-EXELIXIS-EXL-2024-000609

PATIENT
  Age: 11 Year
  Sex: Female

DRUGS (21)
  1. CABOMETYX [Suspect]
     Active Substance: CABOZANTINIB S-MALATE
     Indication: Ewing^s sarcoma metastatic
     Dosage: 60 MG DAILY 6 TIMES A WEEK
     Route: 048
     Dates: start: 20240820, end: 20240917
  2. CABOMETYX [Suspect]
     Active Substance: CABOZANTINIB S-MALATE
     Dosage: 40 MG, QD (6 DAYS/WEEK)
     Dates: start: 20241003
  3. CHOLECALCIFEROL [Concomitant]
     Active Substance: CHOLECALCIFEROL
  4. PEPCID [Concomitant]
     Active Substance: FAMOTIDINE
  5. MEDIQUE DIAMODE [Concomitant]
     Active Substance: LOPERAMIDE HYDROCHLORIDE
     Indication: Diarrhoea
  6. XARELTO [Concomitant]
     Active Substance: RIVAROXABAN
  7. BACTRIM [Concomitant]
     Active Substance: SULFAMETHOXAZOLE\TRIMETHOPRIM
  8. ZOFRAN [Concomitant]
     Active Substance: ONDANSETRON HYDROCHLORIDE
     Indication: Nausea
  9. ZOFRAN [Concomitant]
     Active Substance: ONDANSETRON HYDROCHLORIDE
     Indication: Vomiting
  10. ATIVAN [Concomitant]
     Active Substance: LORAZEPAM
     Indication: Nausea
  11. ATIVAN [Concomitant]
     Active Substance: LORAZEPAM
     Indication: Vomiting
  12. CHILDRENS TYLENOL [Concomitant]
     Active Substance: ACETAMINOPHEN
     Indication: Pain
  13. OXYCODONE HYDROCHLORIDE [Concomitant]
     Active Substance: OXYCODONE HYDROCHLORIDE
     Indication: Pain
  14. CONSTULOSE [Concomitant]
     Active Substance: LACTULOSE
  15. EMLA [Concomitant]
     Active Substance: LIDOCAINE\PRILOCAINE
     Indication: Pain
  16. SENNOSIDES [Concomitant]
     Active Substance: SENNOSIDES
     Indication: Constipation
  17. DIPHENHYDRAMINE HYDROCHLORIDE [Concomitant]
     Active Substance: DIPHENHYDRAMINE HYDROCHLORIDE
     Indication: Nausea
  18. DIPHENHYDRAMINE HYDROCHLORIDE [Concomitant]
     Active Substance: DIPHENHYDRAMINE HYDROCHLORIDE
     Indication: Vomiting
  19. TRANSDERM SCOP [Concomitant]
     Active Substance: SCOPOLAMINE
     Indication: Nausea
  20. DIAZEPAM [Concomitant]
     Active Substance: DIAZEPAM
     Indication: Muscle spasms
  21. CYPROHEPTADINE HYDROCHLORIDE [Concomitant]
     Active Substance: CYPROHEPTADINE HYDROCHLORIDE
     Indication: Hypersensitivity

REACTIONS (13)
  - Pneumothorax [Recovered/Resolved]
  - Pneumonia [Recovered/Resolved]
  - Alopecia [Unknown]
  - Vomiting [Unknown]
  - Stomatitis [Unknown]
  - Decreased appetite [Recovering/Resolving]
  - Nausea [Unknown]
  - Pain in extremity [Recovered/Resolved]
  - Fluid intake reduced [Unknown]
  - Skin papilloma [Unknown]
  - Inappropriate schedule of product administration [Unknown]
  - Product prescribing issue [Unknown]
  - Off label use [Unknown]

NARRATIVE: CASE EVENT DATE: 20240820
